FAERS Safety Report 10291579 (Version 1)
Quarter: 2014Q3

REPORT INFORMATION
  Report Type: Spontaneous
  Country: AT (occurrence: AT)
  Receive Date: 20140710
  Receipt Date: 20140710
  Transmission Date: 20150326
  Serious: Yes (Other)
  Sender: FDA-Public Use
  Company Number: PHHY2014AT083725

PATIENT
  Age: 81 Year
  Sex: Female
  Weight: 70 kg

DRUGS (7)
  1. PIPERACILLIN [Concomitant]
     Active Substance: PIPERACILLIN
     Indication: PNEUMONIA
  2. TAZOBACTAM [Concomitant]
     Active Substance: TAZOBACTAM
     Indication: PNEUMONIA
  3. NEBIVOLOL [Concomitant]
     Active Substance: NEBIVOLOL
  4. SIMVASTATIN. [Suspect]
     Active Substance: SIMVASTATIN
  5. DILTIAZEM [Interacting]
     Active Substance: DILTIAZEM
  6. RIVAROXABAN [Interacting]
     Active Substance: RIVAROXABAN
     Dosage: 20 MG/DAY
  7. TRAZODONE [Concomitant]
     Active Substance: TRAZODONE HYDROCHLORIDE

REACTIONS (9)
  - Drug interaction [Unknown]
  - Anaemia [Unknown]
  - Neck pain [Unknown]
  - Prothrombin time shortened [Unknown]
  - Activated partial thromboplastin time prolonged [Unknown]
  - Haematoma [Unknown]
  - Creatinine renal clearance decreased [Unknown]
  - Blood creatinine increased [Unknown]
  - International normalised ratio increased [Unknown]
